FAERS Safety Report 4714071-6 (Version None)
Quarter: 2005Q3

REPORT INFORMATION
  Report Type: 
  Country: None (occurrence: None)
  Receive Date: 20050714
  Receipt Date: 20050620
  Transmission Date: 20060218
  Serious: Yes (Other)
  Sender: FDA-Public Use
  Company Number: PHEH2005US06902

PATIENT
  Age: 35 Year
  Sex: Female

DRUGS (7)
  1. ZELNORM [Suspect]
     Indication: IRRITABLE BOWEL SYNDROME
     Dosage: 6 MG, PRN
     Route: 048
     Dates: start: 20030601, end: 20040223
  2. ZELNORM [Suspect]
     Dosage: 6 MG, PRN
     Route: 048
     Dates: start: 20040311
  3. ZELNORM [Suspect]
     Dosage: 6 MG, BID
     Route: 048
     Dates: start: 20041201
  4. BENEFIBER [Concomitant]
     Dosage: 1 T, QD
  5. PERI-COLACE [Concomitant]
     Dosage: UNK, PRN
  6. MIRALAX [Concomitant]
     Dosage: 1 CUP, QD
  7. MAGNESIUM CITRATE SOLUTION [Concomitant]

REACTIONS (9)
  - ABDOMINAL PAIN LOWER [None]
  - COLONIC POLYP [None]
  - CONSTIPATION [None]
  - DRUG EXPOSURE DURING PREGNANCY [None]
  - DRUG INEFFECTIVE [None]
  - HEPATIC ENZYME INCREASED [None]
  - INTESTINAL POLYP [None]
  - NORMAL NEWBORN [None]
  - POLYPECTOMY [None]
